FAERS Safety Report 9535807 (Version 1)
Quarter: 2013Q3

REPORT INFORMATION
  Report Type: Spontaneous
  Country: AU (occurrence: AU)
  Receive Date: 20130919
  Receipt Date: 20130919
  Transmission Date: 20140515
  Serious: Yes (Other)
  Sender: FDA-Public Use
  Company Number: AU-BRISTOL-MYERS SQUIBB COMPANY-19413384

PATIENT
  Age: 67 Year
  Sex: Male

DRUGS (1)
  1. ONGLYZA TABS [Suspect]

REACTIONS (2)
  - Pulmonary oedema [Unknown]
  - Hepatomegaly [Unknown]
